FAERS Safety Report 4409868-6 (Version None)
Quarter: 2004Q3

REPORT INFORMATION
  Report Type: 
  Country: None (occurrence: None)
  Receive Date: 20040728
  Receipt Date: 20040719
  Transmission Date: 20050211
  Serious: Yes (Other)
  Sender: FDA-Public Use
  Company Number: US-BRISTOL-MYERS SQUIBB COMPANY-12644670

PATIENT

DRUGS (3)
  1. DOXORUBICIN HCL [Suspect]
     Indication: ACUTE LYMPHOCYTIC LEUKAEMIA
     Dosage: 30 MG/M2 X2 DURING REMISSION INDUCTION FOLLOWED BY 30 MG/M2/3 WEEKS X8 DURING INDUCTION THERAPY
  2. DEXRAZOXANE HCL [Concomitant]
     Indication: PROPHYLAXIS
  3. RADIATION THERAPY [Concomitant]

REACTIONS (2)
  - CARDIOMYOPATHY [None]
  - TROPONIN T INCREASED [None]
